FAERS Safety Report 4466777-4 (Version None)
Quarter: 2004Q3

REPORT INFORMATION
  Report Type: 
  Country: None (occurrence: None)
  Receive Date: 20040930
  Receipt Date: 20040917
  Transmission Date: 20050211
  Serious: Yes (Other)
  Sender: FDA-Public Use
  Company Number: 2004062440

PATIENT
  Age: 55 Year
  Sex: Male

DRUGS (1)
  1. DILANTIN [Suspect]
     Indication: CONVULSION
     Dosage: 400 MG , ORAL
     Route: 048
     Dates: start: 20011101

REACTIONS (7)
  - CONVULSION [None]
  - DRUG LEVEL DECREASED [None]
  - DRUG LEVEL INCREASED [None]
  - FALL [None]
  - LOSS OF CONSCIOUSNESS [None]
  - STATUS EPILEPTICUS [None]
  - TREATMENT NONCOMPLIANCE [None]
